FAERS Safety Report 22125106 (Version 2)
Quarter: 2023Q2

REPORT INFORMATION
  Report Type: Report from Study
  Country: US (occurrence: US)
  Receive Date: 20230322
  Receipt Date: 20230619
  Transmission Date: 20230722
  Serious: Yes (Hospitalization)
  Sender: FDA-Public Use
  Company Number: US-BAYER-2023A033304

PATIENT
  Age: 61 Year
  Sex: Female

DRUGS (3)
  1. ADEMPAS [Suspect]
     Active Substance: RIOCIGUAT
     Indication: Pulmonary hypertension
     Dosage: UNK
  2. ADEMPAS [Suspect]
     Active Substance: RIOCIGUAT
     Indication: Pulmonary hypertension
     Dosage: 1 MG, TID
     Route: 048
     Dates: start: 202010
  3. ADEMPAS [Suspect]
     Active Substance: RIOCIGUAT
     Indication: Pulmonary hypertension
     Dosage: 1 MG, TID
     Route: 048
     Dates: start: 202010

REACTIONS (4)
  - Necrotising fasciitis [None]
  - COVID-19 [None]
  - Gastroenteritis [None]
  - Hospitalisation [None]
